FAERS Safety Report 23074459 (Version 1)
Quarter: 2023Q4

REPORT INFORMATION
  Report Type: Spontaneous
  Country: JP (occurrence: JP)
  Receive Date: 20231017
  Receipt Date: 20231017
  Transmission Date: 20240110
  Serious: Yes (Other)
  Sender: FDA-Public Use
  Company Number: JP-PFIZER INC-PV202300139114

PATIENT
  Age: 98 Year
  Sex: Female
  Weight: 32.6 kg

DRUGS (10)
  1. PAXLOVID [Suspect]
     Active Substance: NIRMATRELVIR\RITONAVIR
     Indication: COVID-19 treatment
     Dosage: [NIRMATRELVIR 300 MG]/[RITONAVIR 100 MG]; 2X/DAY
     Route: 048
     Dates: start: 20230729, end: 20230802
  2. CALONAL [Concomitant]
     Active Substance: ACETAMINOPHEN
     Indication: Pyrexia
     Dosage: 1 DF  (300 1T 1X 4 USE)
     Route: 048
     Dates: start: 20230729
  3. ASVERIN (TIPEPIDINE HIBENZATE) [Concomitant]
     Active Substance: TIPEPIDINE HIBENZATE
     Indication: Bronchitis
     Dosage: 1 DF, 3X/DAY (10 3T 3X)
     Route: 048
     Dates: start: 20230729, end: 20230803
  4. AMBROXOL [Concomitant]
     Active Substance: AMBROXOL
     Indication: Bronchitis
     Dosage: 1 DF, 1X/DAY (45 1T 1X)
     Route: 048
     Dates: start: 20230729, end: 20230802
  5. EFINACONAZOLE [Concomitant]
     Active Substance: EFINACONAZOLE
     Indication: Dermatophytosis of nail
     Dosage: 10 % 3.56 G
     Route: 061
     Dates: start: 20221117
  6. ELDECALCITOL [Concomitant]
     Active Substance: ELDECALCITOL
     Indication: Osteoporosis
     Dosage: 1 DF, 1X/DAY (0.5U 1T 1X MORNING)
     Route: 048
     Dates: start: 20230126
  7. AZILSARTAN KAMEDOXOMIL [Concomitant]
     Active Substance: AZILSARTAN KAMEDOXOMIL
     Indication: Hypertension
     Dosage: 1 DF, 1X/DAY (20 1T 1X)
     Route: 048
     Dates: start: 20230126
  8. RABEPRAZOLE [Concomitant]
     Active Substance: RABEPRAZOLE
     Indication: Gastrooesophageal reflux disease
     Dosage: 1 DF, 1X/DAY (10 1T 1X)
     Route: 048
     Dates: start: 20230126
  9. REBAMIPIDE [Concomitant]
     Active Substance: REBAMIPIDE
     Indication: Gastritis
     Dosage: 1 DF, 3X/DAY (100 3T 3X)
     Route: 048
     Dates: start: 20230126
  10. MOSAPRIDE [Concomitant]
     Active Substance: MOSAPRIDE
     Indication: Gastritis
     Dosage: 1 DF, 3X/DAY (5 3T 3X)
     Route: 048
     Dates: start: 20230126

REACTIONS (6)
  - COVID-19 [Recovering/Resolving]
  - Disease recurrence [Recovering/Resolving]
  - Hepatic function abnormal [Recovered/Resolved]
  - Decreased appetite [Unknown]
  - Liver disorder [Recovered/Resolved]
  - Physical deconditioning [Unknown]

NARRATIVE: CASE EVENT DATE: 20230805
